FAERS Safety Report 6339946-6 (Version None)
Quarter: 2009Q3

REPORT INFORMATION
  Report Type: 
  Country: None (occurrence: None)
  Receive Date: 20090903
  Receipt Date: 20090824
  Transmission Date: 20100115
  Serious: Yes (Hospitalization)
  Sender: FDA-Public Use
  Company Number: IL-NOVOPROD-290944

PATIENT
  Age: 17 Year
  Sex: Male

DRUGS (3)
  1. NORDITROPIN [Suspect]
     Indication: GROWTH HORMONE DEFICIENCY
     Dosage: .03 MG/KG, QD
     Dates: start: 20020301, end: 20050101
  2. NORDITROPIN [Suspect]
     Dosage: .045 MG/KG, QD
     Dates: start: 20060101, end: 20081001
  3. ELTROXIN [Concomitant]

REACTIONS (1)
  - OSTEOSARCOMA LOCALISED [None]
